FAERS Safety Report 16610066 (Version 6)
Quarter: 2019Q4

REPORT INFORMATION
  Report Type: Spontaneous
  Country: BR (occurrence: BR)
  Receive Date: 20190722
  Receipt Date: 20191128
  Transmission Date: 20200122
  Serious: Yes (Other)
  Sender: FDA-Public Use
  Company Number: BR-GLAXOSMITHKLINE-BR2019GSK088165

PATIENT
  Age: 66 Year
  Sex: Female
  Weight: 69 kg

DRUGS (2)
  1. NUCALA [Suspect]
     Active Substance: MEPOLIZUMAB
     Indication: ASTHMA
  2. NUCALA [Suspect]
     Active Substance: MEPOLIZUMAB
     Indication: ASTHMA
     Dosage: 100 MG, Z
     Dates: start: 20190322

REACTIONS (52)
  - Hypertension [Unknown]
  - Dizziness [Not Recovered/Not Resolved]
  - Dyspnoea exertional [Not Recovered/Not Resolved]
  - Muscular weakness [Unknown]
  - Chest pain [Unknown]
  - Noninfective gingivitis [Unknown]
  - Blood pressure decreased [Not Recovered/Not Resolved]
  - Dry skin [Not Recovered/Not Resolved]
  - Skin mass [Not Recovered/Not Resolved]
  - Product availability issue [Unknown]
  - Condition aggravated [Unknown]
  - Memory impairment [Unknown]
  - Wound [Unknown]
  - Erythema [Not Recovered/Not Resolved]
  - Impaired healing [Unknown]
  - Product dose omission [Unknown]
  - Pruritus [Unknown]
  - Cough [Unknown]
  - Vulvovaginal pruritus [Unknown]
  - Pruritus [Not Recovered/Not Resolved]
  - Fall [Unknown]
  - Micturition disorder [Unknown]
  - Ear pain [Unknown]
  - Cataract [Unknown]
  - Decreased interest [Unknown]
  - Heart rate decreased [Not Recovered/Not Resolved]
  - Blood pressure abnormal [Unknown]
  - Blood glucose fluctuation [Unknown]
  - Emotional disorder [Unknown]
  - Dyspnoea [Not Recovered/Not Resolved]
  - Mouth ulceration [Unknown]
  - Nervousness [Unknown]
  - Diabetes mellitus inadequate control [Unknown]
  - Feeling cold [Unknown]
  - Urine odour abnormal [Unknown]
  - Nail discolouration [Unknown]
  - Decreased appetite [Unknown]
  - Head discomfort [Unknown]
  - Malaise [Recovered/Resolved]
  - Vomiting [Recovered/Resolved]
  - Tremor [Unknown]
  - Diabetes mellitus [Unknown]
  - Therapy cessation [Unknown]
  - Crying [Unknown]
  - Limb discomfort [Not Recovered/Not Resolved]
  - Fatigue [Not Recovered/Not Resolved]
  - Hyperglycaemia [Not Recovered/Not Resolved]
  - Limb injury [Unknown]
  - Loss of personal independence in daily activities [Unknown]
  - Drug ineffective [Unknown]
  - Dysarthria [Unknown]
  - Pain in extremity [Unknown]

NARRATIVE: CASE EVENT DATE: 20190426
